FAERS Safety Report 13856589 (Version 1)
Quarter: 2017Q3

REPORT INFORMATION
  Report Type: Spontaneous
  Country: US (occurrence: US)
  Receive Date: 20170810
  Receipt Date: 20170810
  Transmission Date: 20171127
  Serious: No
  Sender: FDA-Public Use
  Company Number: US-ROCHE-1348116

PATIENT
  Sex: Female

DRUGS (2)
  1. AMOXICILLIN. [Concomitant]
     Active Substance: AMOXICILLIN
     Indication: INFECTION
     Route: 065
  2. TAMIFLU [Suspect]
     Active Substance: OSELTAMIVIR PHOSPHATE
     Indication: PRODUCT USED FOR UNKNOWN INDICATION
     Dosage: LAST MONDAY AND TUESDAY
     Route: 065

REACTIONS (9)
  - Irritability [Unknown]
  - Anxiety [Unknown]
  - Fear of death [Unknown]
  - Paranoia [Unknown]
  - Thinking abnormal [Unknown]
  - Sexual dysfunction [Unknown]
  - Crying [Unknown]
  - Nervousness [Unknown]
  - Hallucination [Unknown]
